FAERS Safety Report 6770513-6 (Version None)
Quarter: 2010Q2

REPORT INFORMATION
  Report Type: 
  Country: None (occurrence: None)
  Receive Date: 20100615
  Receipt Date: 20100505
  Transmission Date: 20101027
  Serious: Yes (Other)
  Sender: FDA-Public Use
  Company Number: US-BAXTER-2010BH001596

PATIENT
  Age: 59 Year
  Sex: Male
  Weight: 63 kg

DRUGS (10)
  1. HEPARIN SODIUM [Suspect]
     Indication: AORTIC BYPASS
     Route: 042
     Dates: start: 20071120, end: 20071120
  2. LISINOPRIL [Concomitant]
     Indication: DRUG USE FOR UNKNOWN INDICATION
     Route: 065
  3. ALBUTEROL [Concomitant]
     Indication: DRUG USE FOR UNKNOWN INDICATION
     Route: 055
  4. BUPROPION HYDROCHLORIDE [Concomitant]
     Indication: DRUG USE FOR UNKNOWN INDICATION
     Route: 065
  5. SIMVASTATIN [Concomitant]
     Indication: DRUG USE FOR UNKNOWN INDICATION
     Route: 065
  6. DIPYRIDAMOLE [Concomitant]
     Indication: DRUG USE FOR UNKNOWN INDICATION
     Route: 065
  7. TRAMADOL HYDROCHLORIDE [Concomitant]
     Indication: DRUG USE FOR UNKNOWN INDICATION
     Route: 065
  8. FLUNISOLIDE [Concomitant]
     Indication: DRUG USE FOR UNKNOWN INDICATION
     Route: 065
  9. METOPROLOL TARTRATE [Concomitant]
     Indication: DRUG USE FOR UNKNOWN INDICATION
     Route: 065
  10. CEFAZOLIN [Concomitant]
     Indication: DRUG USE FOR UNKNOWN INDICATION
     Route: 042

REACTIONS (18)
  - ABDOMINAL DISTENSION [None]
  - AORTIC ANEURYSM [None]
  - ATELECTASIS [None]
  - BRADYCARDIA [None]
  - CONFUSIONAL STATE [None]
  - ECCHYMOSIS [None]
  - GRAFT THROMBOSIS [None]
  - HEPARIN-INDUCED THROMBOCYTOPENIA [None]
  - HYPERTENSION [None]
  - HYPOTENSION [None]
  - NAUSEA [None]
  - PAIN IN EXTREMITY [None]
  - PERIPHERAL ARTERY ANEURYSM [None]
  - PERIPHERAL ISCHAEMIA [None]
  - SINUS RHYTHM [None]
  - SINUS TACHYCARDIA [None]
  - VOMITING [None]
  - WHITE CLOT SYNDROME [None]
